FAERS Safety Report 23668046 (Version 1)
Quarter: 2024Q1

REPORT INFORMATION
  Report Type: Spontaneous
  Country: PT (occurrence: PT)
  Receive Date: 20240325
  Receipt Date: 20240325
  Transmission Date: 20240410
  Serious: Yes (Death, Other)
  Sender: FDA-Public Use
  Company Number: PT-SA-2023SA165283

PATIENT

DRUGS (6)
  1. ALENDRONATE SODIUM [Suspect]
     Active Substance: ALENDRONATE SODIUM
     Indication: Product used for unknown indication
     Dosage: UNK UNK, UNKNOWN FREQ.
     Route: 065
  2. ACETAMINOPHEN [Suspect]
     Active Substance: ACETAMINOPHEN
     Dosage: UNK
     Route: 065
  3. ACETAMINOPHEN [Suspect]
     Active Substance: ACETAMINOPHEN
     Indication: Product used for unknown indication
     Dosage: UNK UNK, UNKNOWN FREQ
     Route: 065
  4. ACETAMINOPHEN [Suspect]
     Active Substance: ACETAMINOPHEN
     Dosage: UNK UNK, UNKNOWN FREQ
     Route: 065
  5. ACETAMINOPHEN [Suspect]
     Active Substance: ACETAMINOPHEN
     Dosage: UNK UNK, UNKNOWN FREQ.
     Route: 065
  6. SODIUM PICOSULFATE [Suspect]
     Active Substance: SODIUM PICOSULFATE
     Indication: Product used for unknown indication
     Dosage: UNK
     Route: 065

REACTIONS (36)
  - Blood pressure increased [Fatal]
  - Haemorrhagic stroke [Fatal]
  - Presyncope [Fatal]
  - Ocular discomfort [Fatal]
  - Somnolence [Fatal]
  - Dizziness [Fatal]
  - Abdominal pain upper [Fatal]
  - Dyspnoea [Fatal]
  - Headache [Fatal]
  - Chills [Fatal]
  - Abdominal pain [Fatal]
  - Fatigue [Fatal]
  - Blindness [Fatal]
  - Haematemesis [Fatal]
  - Insomnia [Fatal]
  - Tachycardia [Fatal]
  - Arthralgia [Fatal]
  - Syncope [Fatal]
  - Vomiting [Fatal]
  - Ascites [Fatal]
  - Myalgia [Fatal]
  - Coma [Fatal]
  - Amaurosis fugax [Fatal]
  - Decreased appetite [Fatal]
  - Pruritus [Fatal]
  - Tinnitus [Fatal]
  - Altered state of consciousness [Fatal]
  - Diplopia [Fatal]
  - Eye pain [Fatal]
  - Generalised oedema [Fatal]
  - Asthenia [Fatal]
  - Photophobia [Fatal]
  - Cardio-respiratory arrest [Fatal]
  - Pyrexia [Fatal]
  - Head discomfort [Fatal]
  - Off label use [Unknown]
